FAERS Safety Report 16563865 (Version 1)
Quarter: 2019Q3

REPORT INFORMATION
  Report Type: Report from Study
  Country: None (occurrence: CO)
  Receive Date: 20190712
  Receipt Date: 20190712
  Transmission Date: 20191004
  Serious: Yes (Hospitalization)
  Sender: FDA-Public Use
  Company Number: CO-ABBVIE-19K-036-2841419-00

PATIENT
  Age: 26 Year
  Sex: Female
  Weight: 58 kg

DRUGS (1)
  1. HUMIRA [Suspect]
     Active Substance: ADALIMUMAB
     Indication: RHEUMATOID ARTHRITIS
     Route: 058
     Dates: start: 20160325, end: 20190521

REACTIONS (11)
  - Vulvovaginal mycotic infection [Recovering/Resolving]
  - Inflammation [Not Recovered/Not Resolved]
  - Muscle rigidity [Recovering/Resolving]
  - Vitamin D abnormal [Not Recovered/Not Resolved]
  - Diarrhoea [Recovering/Resolving]
  - Drug ineffective [Not Recovered/Not Resolved]
  - Colitis [Unknown]
  - Arthritis [Recovering/Resolving]
  - Ankylosing spondylitis [Recovering/Resolving]
  - Vomiting [Recovering/Resolving]
  - Inflammation [Recovering/Resolving]

NARRATIVE: CASE EVENT DATE: 20190621
